FAERS Safety Report 5269346-1 (Version None)
Quarter: 2007Q1

REPORT INFORMATION
  Report Type: 
  Country: None (occurrence: None)
  Receive Date: 20070319
  Receipt Date: 20070307
  Transmission Date: 20070707
  Serious: Yes (Hospitalization, Other)
  Sender: FDA-Public Use
  Company Number: US-PFIZER INC-2007018396

PATIENT
  Sex: Female
  Weight: 59 kg

DRUGS (5)
  1. CHANTIX [Suspect]
     Indication: EX-SMOKER
     Route: 048
  2. IBUPROFEN [Concomitant]
  3. BENICAR HCT [Concomitant]
  4. EFFEXOR [Concomitant]
  5. FLEXERIL [Concomitant]

REACTIONS (9)
  - ABDOMINAL DISTENSION [None]
  - BACK INJURY [None]
  - CONSTIPATION [None]
  - CONTUSION [None]
  - DIZZINESS [None]
  - LETHARGY [None]
  - MUSCLE SPASMS [None]
  - NAUSEA [None]
  - ROAD TRAFFIC ACCIDENT [None]
